FAERS Safety Report 6044094-9 (Version None)
Quarter: 2009Q1

REPORT INFORMATION
  Report Type: 
  Country: None (occurrence: None)
  Receive Date: 20090120
  Receipt Date: 20090116
  Transmission Date: 20090719
  Serious: Yes (Other)
  Sender: FDA-Public Use
  Company Number: B0554543A

PATIENT
  Age: 48 Year
  Sex: Male

DRUGS (1)
  1. CLAMOXYL [Suspect]
     Indication: DRUG USE FOR UNKNOWN INDICATION
     Dosage: 500MG PER DAY
     Route: 048
     Dates: start: 20080701, end: 20080701

REACTIONS (3)
  - CHEST DISCOMFORT [None]
  - FACE OEDEMA [None]
  - PRURITUS [None]
